FAERS Safety Report 6540848-0 (Version None)
Quarter: 2010Q1

REPORT INFORMATION
  Report Type: 
  Country: None (occurrence: None)
  Receive Date: 20100118
  Receipt Date: 20100111
  Transmission Date: 20100710
  Serious: Yes (Death)
  Sender: FDA-Public Use
  Company Number: PHHY2010CA01123

PATIENT
  Sex: Female

DRUGS (3)
  1. CLOZARIL [Suspect]
     Indication: SCHIZOPHRENIA
     Dosage: 275 MG DAILY
     Route: 048
     Dates: start: 20000628
  2. RABEPRAZOLE SODIUM [Concomitant]
  3. DOMPERIDONE [Concomitant]

REACTIONS (1)
  - OESOPHAGEAL CARCINOMA [None]
